FAERS Safety Report 8870341 (Version 1)
Quarter: 2012Q4

REPORT INFORMATION
  Report Type: 
  Country: US (occurrence: US)
  Receive Date: 20121023
  Receipt Date: 20121023
  Transmission Date: 20130627
  Serious: No
  Sender: FDA-Public Use
  Company Number: US-AMGEN-USASP2012011111

PATIENT
  Sex: Female
  Weight: 61.22 kg

DRUGS (10)
  1. ENBREL [Suspect]
     Indication: PRODUCT USED FOR UNKNOWN INDICATION
     Dosage: 50 mg, qwk
     Route: 058
  2. CENTRUM SILVER [Concomitant]
  3. TOPROL [Concomitant]
     Dosage: 25 mg, UNK
  4. HYDROCHLOROTH [Concomitant]
     Dosage: 12.5 mg, UNK
  5. MAGNESIUM [Concomitant]
     Dosage: 200 mg, UNK
  6. FISH OIL [Concomitant]
  7. ASPIRIN [Concomitant]
     Dosage: 81 mg, UNK
  8. POTASSIUM GLUCONATE [Concomitant]
     Dosage: 2 mEq, UNK
  9. VASOTEC [Concomitant]
     Dosage: 20 mg, UNK
  10. VITAMIN D3 [Concomitant]

REACTIONS (4)
  - Muscle enzyme increased [Recovered/Resolved]
  - Weight increased [Unknown]
  - Weight decreased [Unknown]
  - Paraesthesia [Recovered/Resolved]
